FAERS Safety Report 12202147 (Version 1)
Quarter: 2016Q1

REPORT INFORMATION
  Report Type: Spontaneous
  Country: GB (occurrence: GB)
  Receive Date: 20160322
  Receipt Date: 20160322
  Transmission Date: 20160526
  Serious: Yes (Death, Other)
  Sender: FDA-Public Use
  Company Number: PHHY2016GB035291

PATIENT
  Age: 52 Year
  Sex: Female

DRUGS (2)
  1. PARACETAMOL [Suspect]
     Active Substance: ACETAMINOPHEN
     Indication: OSTEOPOROSIS
     Route: 065
  2. LEMSIP                                  /UNK/ [Suspect]
     Active Substance: ACETAMINOPHEN\ASCORBIC ACID\PHENYLEPHRINE HYDROCHLORIDE\SODIUM CITRATE
     Indication: INFLUENZA
     Route: 065

REACTIONS (7)
  - Renal failure [Unknown]
  - Restlessness [Unknown]
  - Hepatic failure [Unknown]
  - Multiple organ dysfunction syndrome [Fatal]
  - Liver disorder [Unknown]
  - Overdose [Unknown]
  - Somnolence [Unknown]

NARRATIVE: CASE EVENT DATE: 20091029
